FAERS Safety Report 24988887 (Version 1)
Quarter: 2025Q1

REPORT INFORMATION
  Report Type: Report from Study
  Country: US (occurrence: US)
  Receive Date: 20250220
  Receipt Date: 20250220
  Transmission Date: 20250408
  Serious: No
  Sender: ROCHE
  Company Number: US-ROCHE-10000210886

PATIENT
  Age: 47 Year
  Sex: Female
  Weight: 72.57 kg

DRUGS (20)
  1. OCREVUS [Suspect]
     Active Substance: OCRELIZUMAB
     Indication: Multiple sclerosis
     Dosage: INFUSION DATES 08-JUL-2022, 11-AUG-2022, 17-FEB-2023, 03-AUG-2023, 08-FEB-2024, 01-AUG-2024.
     Route: 040
     Dates: start: 20220708
  2. MIRENA [Concomitant]
     Active Substance: LEVONORGESTREL
     Route: 015
     Dates: start: 20221003
  3. LEVOTHYROXINE [Concomitant]
     Active Substance: LEVOTHYROXINE
     Indication: Hypothyroidism
     Route: 048
  4. LEVOTHYROXINE [Concomitant]
     Active Substance: LEVOTHYROXINE
     Route: 048
  5. NP THYROID [Concomitant]
     Active Substance: LEVOTHYROXINE\LIOTHYRONINE
     Indication: Hypothyroidism
     Route: 048
  6. GEMTESA [Concomitant]
     Active Substance: VIBEGRON
     Indication: Incontinence
     Route: 048
  7. GEMTESA [Concomitant]
     Active Substance: VIBEGRON
     Indication: Hypertonic bladder
  8. GEMTESA [Concomitant]
     Active Substance: VIBEGRON
     Indication: Micturition urgency
  9. GABAPENTIN [Concomitant]
     Active Substance: GABAPENTIN
     Indication: Neuralgia
     Route: 048
  10. GABAPENTIN [Concomitant]
     Active Substance: GABAPENTIN
     Indication: Paraesthesia
  11. CRANBERRY [Concomitant]
     Active Substance: CRANBERRY
     Indication: Prophylaxis urinary tract infection
     Route: 048
  12. B COMPLEX WITH C [Concomitant]
     Route: 048
  13. VITAMIN D3 [Concomitant]
     Active Substance: CHOLECALCIFEROL
     Indication: Multiple sclerosis
     Route: 048
  14. VITAMIN D3 [Concomitant]
     Active Substance: CHOLECALCIFEROL
     Route: 048
  15. MAGNESIUM [Concomitant]
     Active Substance: MAGNESIUM
     Route: 048
  16. COPAXONE [Concomitant]
     Active Substance: GLATIRAMER ACETATE
     Indication: Multiple sclerosis
     Route: 058
     Dates: start: 200410, end: 2009
  17. COPAXONE [Concomitant]
     Active Substance: GLATIRAMER ACETATE
     Route: 058
     Dates: start: 2010, end: 2014
  18. COPAXONE [Concomitant]
     Active Substance: GLATIRAMER ACETATE
     Route: 058
     Dates: start: 2014, end: 201408
  19. COPAXONE [Concomitant]
     Active Substance: GLATIRAMER ACETATE
     Route: 058
     Dates: start: 2014, end: 2015
  20. GLATOPA [Concomitant]
     Active Substance: GLATIRAMER ACETATE
     Indication: Multiple sclerosis
     Route: 058
     Dates: start: 2015, end: 202207

REACTIONS (4)
  - Influenza [Recovered/Resolved]
  - Cough [Not Recovered/Not Resolved]
  - Brain fog [Not Recovered/Not Resolved]
  - Memory impairment [Not Recovered/Not Resolved]

NARRATIVE: CASE EVENT DATE: 20250131
